FAERS Safety Report 7494423-4 (Version None)
Quarter: 2011Q2

REPORT INFORMATION
  Report Type: 
  Country: None (occurrence: None)
  Receive Date: 20110520
  Receipt Date: 20110509
  Transmission Date: 20111010
  Serious: Yes (Hospitalization)
  Sender: FDA-Public Use
  Company Number: IE-JNJFOC-20110411108

PATIENT
  Sex: Male

DRUGS (2)
  1. STELARA [Suspect]
     Indication: PSORIASIS
     Route: 058
  2. ISTIN [Concomitant]
     Indication: BLOOD PRESSURE INCREASED
     Route: 065

REACTIONS (4)
  - PRESYNCOPE [None]
  - BRADYCARDIA [None]
  - HOSPITALISATION [None]
  - HEADACHE [None]
